FAERS Safety Report 23340336 (Version 1)
Quarter: 2023Q4

REPORT INFORMATION
  Report Type: Spontaneous
  Country: JP (occurrence: JP)
  Receive Date: 20231227
  Receipt Date: 20231227
  Transmission Date: 20240109
  Serious: Yes (Other)
  Sender: FDA-Public Use
  Company Number: JP-002147023-NVSJ2023JP018029

PATIENT

DRUGS (1)
  1. LETROZOLE [Suspect]
     Active Substance: LETROZOLE
     Indication: Foetal exposure during pregnancy
     Dosage: MATERNAL EXPOSURE BEFORE PREGNANCY:UNKNOWN
     Route: 050

REACTIONS (2)
  - Premature baby [Unknown]
  - Maternal exposure before pregnancy [Unknown]
